FAERS Safety Report 17488196 (Version 1)
Quarter: 2020Q3

REPORT INFORMATION
  Report Type: Report from Study
  Country: CO (occurrence: CO)
  Receive Date: 20200303
  Receipt Date: 20200303
  Transmission Date: 20201105
  Serious: Yes (Other)
  Sender: FDA-Public Use
  Company Number: NVSC2020CO045786

PATIENT
  Age: 45 Year
  Sex: Female
  Weight: 108 kg

DRUGS (3)
  1. XOLAIR [Suspect]
     Active Substance: OMALIZUMAB
     Indication: ASTHMA
     Dosage: 450 MG, BIW
     Route: 058
     Dates: start: 20170804
  2. XOLAIR [Suspect]
     Active Substance: OMALIZUMAB
     Dosage: 450 MG, BIW
     Route: 058
     Dates: start: 202002
  3. MONTELUKAST [Suspect]
     Active Substance: MONTELUKAST SODIUM
     Indication: ASTHMA
     Dosage: UNK
     Route: 065

REACTIONS (9)
  - Oropharyngeal pain [Recovered/Resolved]
  - Influenza [Unknown]
  - Nasopharyngitis [Recovered/Resolved]
  - Fibromyalgia [Recovered/Resolved]
  - Pain [Not Recovered/Not Resolved]
  - Tonsillitis [Recovered/Resolved]
  - Asthmatic crisis [Recovered/Resolved]
  - Diabetes mellitus [Unknown]
  - Arthralgia [Unknown]

NARRATIVE: CASE EVENT DATE: 2019
